FAERS Safety Report 23919684 (Version 1)
Quarter: 2024Q2

REPORT INFORMATION
  Report Type: Spontaneous
  Country: BR (occurrence: None)
  Receive Date: 20240530
  Receipt Date: 20240530
  Transmission Date: 20240716
  Serious: Yes (Death, Other)
  Sender: FDA-Public Use
  Company Number: BR-ROCHE-3560521

PATIENT
  Age: 52 Year
  Sex: Female
  Weight: 44 kg

DRUGS (1)
  1. AVASTIN [Suspect]
     Active Substance: BEVACIZUMAB
     Indication: Colon cancer
     Route: 042
     Dates: start: 20231227, end: 20231227

REACTIONS (2)
  - Diarrhoea [Recovered/Resolved]
  - Colon cancer [Fatal]

NARRATIVE: CASE EVENT DATE: 20240108
